FAERS Safety Report 7576313-1 (Version None)
Quarter: 2011Q2

REPORT INFORMATION
  Report Type: 
  Country: None (occurrence: None)
  Receive Date: 20110628
  Receipt Date: 20110615
  Transmission Date: 20111010
  Serious: Yes (Hospitalization)
  Sender: FDA-Public Use
  Company Number: JP-ELI_LILLY_AND_COMPANY-JP201104006641

PATIENT
  Sex: Female

DRUGS (1)
  1. FORTEO [Suspect]
     Dosage: UNK
     Route: 058
     Dates: start: 20110409, end: 20110511

REACTIONS (4)
  - DRUG DOSE OMISSION [None]
  - HAEMORRHAGIC ANAEMIA [None]
  - ASTHENIA [None]
  - FEELING COLD [None]
